FAERS Safety Report 12240329 (Version 2)
Quarter: 2016Q2

REPORT INFORMATION
  Report Type: Spontaneous
  Country: US (occurrence: US)
  Receive Date: 20160405
  Receipt Date: 20160502
  Transmission Date: 20160815
  Serious: No
  Sender: FDA-Public Use
  Company Number: US-PFIZER INC-2016146516

PATIENT
  Age: 68 Year
  Sex: Female

DRUGS (1)
  1. PREMARIN [Suspect]
     Active Substance: ESTROGENS, CONJUGATED
     Indication: HORMONE REPLACEMENT THERAPY
     Dosage: UNK, BROWN TABLET

REACTIONS (4)
  - Pruritus [Unknown]
  - Rash [Unknown]
  - Allergy to chemicals [Unknown]
  - Drug intolerance [Unknown]
